FAERS Safety Report 7619380-9 (Version None)
Quarter: 2011Q3

REPORT INFORMATION
  Report Type: 
  Country: None (occurrence: None)
  Receive Date: 20110719
  Receipt Date: 20110711
  Transmission Date: 20111222
  Serious: Yes (Hospitalization)
  Sender: FDA-Public Use
  Company Number: US-BIOGENIDEC-2011BI014811

PATIENT
  Age: 42 Year
  Sex: Female

DRUGS (2)
  1. AVONEX [Suspect]
     Indication: MULTIPLE SCLEROSIS
     Route: 030
     Dates: start: 20010105, end: 20030101
  2. AVONEX [Suspect]
     Route: 030
     Dates: start: 20030101

REACTIONS (6)
  - BLOOD CHOLESTEROL INCREASED [None]
  - DEVICE RELATED INFECTION [None]
  - TYPE 2 DIABETES MELLITUS [None]
  - FISTULA [None]
  - PANCREATITIS [None]
  - HEPATIC ENZYME INCREASED [None]
